FAERS Safety Report 8925979 (Version 2)
Quarter: 2013Q1

REPORT INFORMATION
  Report Type: Spontaneous
  Country: NL (occurrence: NL)
  Receive Date: 20121126
  Receipt Date: 20130207
  Transmission Date: 20140127
  Serious: Yes (Death, Hospitalization, Other)
  Sender: FDA-Public Use
  Company Number: PHHY2012NL093116

PATIENT
  Age: 56 Year
  Sex: Female
  Weight: 64 kg

DRUGS (10)
  1. ZOMETA [Suspect]
     Indication: BREAST CANCER METASTATIC
     Dosage: 4 MG / 100ML  ONCE IN 28 DAYS (INFUSION IN 18MIN)
     Dates: start: 200912
  2. ZOMETA [Suspect]
     Dosage: 4 MG / 100ML  ONCE IN 28 DAYS (INFUSION IN 18MIN)
     Dates: start: 20100107
  3. ZOMETA [Suspect]
     Dosage: 4 MG / 100ML  ONCE IN 28 DAYS (INFUSION IN 18MIN)
     Dates: start: 20120920
  4. ZOMETA [Suspect]
     Dosage: 4 MG / 100ML  ONCE IN 28 DAYS (INFUSION IN 18MIN)
     Dates: start: 20121017
  5. ZOMETA [Suspect]
     Dosage: 4 MG / 100ML  ONCE IN 28 DAYS (INFUSION IN 18MIN)
     Dates: start: 20121114
  6. ZOMETA [Suspect]
     Dosage: 4 MG / 100ML  ONCE IN 28 DAYS (INFUSION IN 18MIN)
     Dates: start: 20130110
  7. PANTOZOL [Concomitant]
     Dosage: 40 MG, UNK
     Dates: start: 20120216
  8. CALCICHEW [Concomitant]
     Dosage: 500 MG, UNK
     Dates: start: 2009
  9. OXYCONTIN [Concomitant]
     Dosage: 10 MG, 2DD
     Dates: start: 20120319
  10. FRAXODI [Concomitant]
     Dosage: 1DD 0.6
     Dates: start: 20111222

REACTIONS (5)
  - Breast cancer metastatic [Fatal]
  - Metastases to central nervous system [Not Recovered/Not Resolved]
  - Vomiting [Recovering/Resolving]
  - Nausea [Not Recovered/Not Resolved]
  - General physical health deterioration [Unknown]
